FAERS Safety Report 6753544-1 (Version None)
Quarter: 2010Q2

REPORT INFORMATION
  Report Type: 
  Country: None (occurrence: None)
  Receive Date: 20100603
  Receipt Date: 20100525
  Transmission Date: 20101027
  Serious: Yes (Hospitalization)
  Sender: FDA-Public Use
  Company Number: JP-ASTRAZENECA-2010SE18194

PATIENT
  Age: 56 Year
  Sex: Female
  Weight: 36 kg

DRUGS (12)
  1. XYLOCAINE [Suspect]
     Indication: LOCAL ANAESTHESIA
     Route: 049
     Dates: start: 20100406, end: 20100406
  2. OPIATO [Concomitant]
     Indication: PREMEDICATION
     Route: 030
     Dates: start: 20100406, end: 20100406
  3. LASIX [Concomitant]
     Indication: RENAL IMPAIRMENT
     Route: 048
     Dates: start: 20010426
  4. BERIZYM [Concomitant]
     Indication: DIARRHOEA
     Route: 048
     Dates: start: 20020618
  5. FERROMIA [Concomitant]
     Indication: IRON DEFICIENCY ANAEMIA
     Route: 048
     Dates: start: 20040715
  6. ASPARA POTASSIUM [Concomitant]
     Indication: HYPOKALAEMIA
     Route: 048
     Dates: start: 20060810
  7. ALFAROL [Concomitant]
     Indication: OSTEOPOROSIS
     Route: 048
     Dates: start: 20060810
  8. LAC-B [Concomitant]
     Indication: DIARRHOEA
     Route: 048
     Dates: start: 20061005
  9. HIBON [Concomitant]
     Indication: OSTEOPOROSIS
     Route: 048
     Dates: start: 20080828
  10. VITAMEDIN [Concomitant]
     Indication: HYPOVITAMINOSIS
     Route: 048
     Dates: start: 20080828
  11. CALCIUM LACTATE [Concomitant]
     Indication: OSTEOPOROSIS
     Route: 048
     Dates: start: 20080911
  12. URSO 250 [Concomitant]
     Indication: HEPATIC FUNCTION ABNORMAL
     Route: 048
     Dates: start: 20090904

REACTIONS (1)
  - DRUG TOXICITY [None]
